FAERS Safety Report 8979195 (Version 1)
Quarter: 2012Q4

REPORT INFORMATION
  Report Type: 
  Country: GB (occurrence: GB)
  Receive Date: 20121221
  Receipt Date: 20121221
  Transmission Date: 20130627
  Serious: Yes (Hospitalization, Other)
  Sender: FDA-Public Use
  Company Number: GB-GLAXOSMITHKLINE-B0807402A

PATIENT
  Age: 68 Year
  Sex: Female
  Weight: 64 kg

DRUGS (13)
  1. SEROXAT [Suspect]
     Indication: DEPRESSION
     Route: 048
     Dates: start: 19970707, end: 20111206
  2. METOCLOPRAMIDE [Suspect]
     Indication: PRODUCT USED FOR UNKNOWN INDICATION
     Dosage: 10MG As required
     Route: 048
     Dates: start: 20080806, end: 201109
  3. TETRABENAZINE [Suspect]
     Indication: PRODUCT USED FOR UNKNOWN INDICATION
     Dosage: 4.5MG per day
     Route: 048
     Dates: start: 20111128, end: 20120320
  4. LORAZEPAM [Suspect]
     Indication: PRODUCT USED FOR UNKNOWN INDICATION
     Dosage: 1MG Three times per day
     Route: 048
     Dates: start: 20120329, end: 20120523
  5. PROPANOLOL [Suspect]
     Indication: PRODUCT USED FOR UNKNOWN INDICATION
     Dosage: 10MG Six times per day
     Route: 048
     Dates: start: 20120501
  6. MIRTAZAPINE [Suspect]
     Indication: PRODUCT USED FOR UNKNOWN INDICATION
     Dosage: 30MG per day
     Route: 065
     Dates: start: 20120501
  7. ACRIVASTINE [Concomitant]
     Dosage: 8MG Three times per day
     Dates: start: 19950728
  8. FENOFIBRATE [Concomitant]
     Dosage: 160MG Per day
     Dates: start: 20030520
  9. BENDROFLUMETHIAZIDE [Concomitant]
     Dosage: 2.5MG Per day
     Dates: start: 20050420
  10. LANSOPRAZOLE [Concomitant]
     Dosage: 30MG Per day
     Dates: start: 20080627
  11. RAMIPRIL [Concomitant]
     Dosage: 2.5MG Per day
     Dates: start: 20080201
  12. BECONASE [Concomitant]
     Dates: start: 20071120
  13. ATORVASTATIN [Concomitant]
     Dosage: 40MG At night
     Dates: start: 20031114

REACTIONS (5)
  - Hallucination [Not Recovered/Not Resolved]
  - Akathisia [Not Recovered/Not Resolved]
  - Muscle contractions involuntary [Not Recovered/Not Resolved]
  - Fall [Not Recovered/Not Resolved]
  - Eating disorder [Not Recovered/Not Resolved]
